FAERS Safety Report 24941342 (Version 1)
Quarter: 2025Q1

REPORT INFORMATION
  Report Type: Spontaneous
  Country: AU (occurrence: AU)
  Receive Date: 20250207
  Receipt Date: 20250207
  Transmission Date: 20250409
  Serious: Yes (Hospitalization, Other)
  Sender: RANBAXY
  Company Number: AU-SUN PHARMACEUTICAL INDUSTRIES LTD-2025R1-492312

PATIENT
  Age: 20 Year
  Sex: Male

DRUGS (11)
  1. VECURONIUM [Suspect]
     Active Substance: VECURONIUM BROMIDE
     Indication: Product used for unknown indication
     Route: 065
  2. DEXAMETHASONE [Suspect]
     Active Substance: DEXAMETHASONE
     Indication: Product used for unknown indication
     Route: 065
  3. GRANISETRON [Suspect]
     Active Substance: GRANISETRON
     Indication: Product used for unknown indication
     Route: 065
  4. REMIFENTANIL [Suspect]
     Active Substance: REMIFENTANIL
     Indication: Product used for unknown indication
     Route: 065
  5. SUGAMMADEX [Suspect]
     Active Substance: SUGAMMADEX
     Indication: Product used for unknown indication
     Route: 065
  6. TRANEXAMIC ACID [Suspect]
     Active Substance: TRANEXAMIC ACID
     Indication: Product used for unknown indication
     Route: 065
  7. VANCOMYCIN [Suspect]
     Active Substance: VANCOMYCIN
     Indication: Product used for unknown indication
     Route: 065
  8. DROPERIDOL [Suspect]
     Active Substance: DROPERIDOL
     Indication: Product used for unknown indication
     Route: 065
  9. PROPOFOL [Suspect]
     Active Substance: PROPOFOL
     Indication: Product used for unknown indication
     Route: 065
  10. METARAMINOL BITARTRATE [Suspect]
     Active Substance: METARAMINOL BITARTRATE
     Indication: Product used for unknown indication
     Route: 065
  11. PARECOXIB SODIUM [Suspect]
     Active Substance: PARECOXIB SODIUM
     Indication: Product used for unknown indication
     Route: 065

REACTIONS (2)
  - Medical procedure [Unknown]
  - Urticaria [Recovered/Resolved]

NARRATIVE: CASE EVENT DATE: 20241024
